FAERS Safety Report 17520374 (Version 1)
Quarter: 2020Q1

REPORT INFORMATION
  Report Type: Spontaneous
  Country: GB (occurrence: GB)
  Receive Date: 20200310
  Receipt Date: 20200310
  Transmission Date: 20200409
  Serious: Yes (Other)
  Sender: FDA-Public Use
  Company Number: NVSC2020GB065080

PATIENT
  Age: 14 Year
  Sex: Female
  Weight: 27 kg

DRUGS (1)
  1. METRONIDAZOLE. [Suspect]
     Active Substance: METRONIDAZOLE
     Indication: PRODUCT USED FOR UNKNOWN INDICATION
     Dosage: 200 MG
     Route: 065
     Dates: start: 20191201

REACTIONS (3)
  - Mouth ulceration [Unknown]
  - Rash [Recovered/Resolved]
  - Tongue blistering [Recovering/Resolving]

NARRATIVE: CASE EVENT DATE: 20191201
